FAERS Safety Report 8797226 (Version 2)
Quarter: 2012Q4

REPORT INFORMATION
  Report Type: 
  Country: JP (occurrence: JP)
  Receive Date: 20120920
  Receipt Date: 20121206
  Transmission Date: 20130627
  Serious: Yes (Other)
  Sender: FDA-Public Use
  Company Number: JP-JNJFOC-20120906642

PATIENT
  Age: 79 Year
  Sex: Male

DRUGS (3)
  1. FLORID [Suspect]
     Route: 049
  2. FLORID [Suspect]
     Indication: PRODUCT USED FOR UNKNOWN INDICATION
     Route: 049
     Dates: start: 201102, end: 201102
  3. WARFARIN POTASSIUM [Interacting]
     Indication: PRODUCT USED FOR UNKNOWN INDICATION
     Route: 048
     Dates: start: 201102, end: 201102

REACTIONS (2)
  - Haemorrhage [Recovered/Resolved]
  - Drug interaction [Recovered/Resolved]
